FAERS Safety Report 9402023 (Version 3)
Quarter: 2014Q1

REPORT INFORMATION
  Report Type: Report from Study
  Country: AR (occurrence: AR)
  Receive Date: 20130716
  Receipt Date: 20140210
  Transmission Date: 20141002
  Serious: Yes (Other)
  Sender: FDA-Public Use
  Company Number: PHHY2013AR074403

PATIENT
  Sex: Female

DRUGS (1)
  1. TASIGNA [Suspect]
     Indication: CHRONIC MYELOID LEUKAEMIA
     Dosage: 800 MG, DAILY
     Route: 048
     Dates: start: 201301

REACTIONS (6)
  - Bronchospasm [Not Recovered/Not Resolved]
  - Menstruation irregular [Recovering/Resolving]
  - Herpes zoster [Recovering/Resolving]
  - Blood prolactin increased [Unknown]
  - Speech disorder [Not Recovered/Not Resolved]
  - Furuncle [Recovered/Resolved]
